FAERS Safety Report 15308522 (Version 1)
Quarter: 2018Q3

REPORT INFORMATION
  Report Type: Spontaneous
  Country: None (occurrence: US)
  Receive Date: 20180822
  Receipt Date: 20180822
  Transmission Date: 20181010
  Serious: No
  Sender: FDA-Public Use
  Company Number: US-PRESTIGE BRANDS -2054107

PATIENT

DRUGS (1)
  1. TAGAMET [Suspect]
     Active Substance: CIMETIDINE

REACTIONS (3)
  - Retching [None]
  - Vomiting [None]
  - Abdominal pain upper [None]
